FAERS Safety Report 16296704 (Version 1)
Quarter: 2019Q2

REPORT INFORMATION
  Report Type: Spontaneous
  Country: US (occurrence: US)
  Receive Date: 20190404
  Receipt Date: 20190404
  Transmission Date: 20190711
  Serious: Yes (Hospitalization)
  Sender: FDA-Public Use
  Company Number: None

PATIENT

DRUGS (1)
  1. AZITHROMYCIN 250MG TABLET [Suspect]
     Active Substance: AZITHROMYCIN ANHYDROUS

REACTIONS (3)
  - Hypersensitivity [None]
  - Supraventricular tachycardia [None]
  - Drug hypersensitivity [None]

NARRATIVE: CASE EVENT DATE: 20190305
